FAERS Safety Report 12803183 (Version 3)
Quarter: 2016Q4

REPORT INFORMATION
  Report Type: Spontaneous
  Country: DK (occurrence: DK)
  Receive Date: 20161003
  Receipt Date: 20161129
  Transmission Date: 20170207
  Serious: Yes (Congenital Anomaly, Other)
  Sender: FDA-Public Use
  Company Number: DK-TEVA-696129ISR

PATIENT
  Sex: Female
  Weight: 3 kg

DRUGS (1)
  1. CITALOPRAM [Suspect]
     Active Substance: CITALOPRAM HYDROBROMIDE
     Dosage: 20 MILLIGRAM DAILY;
     Route: 064

REACTIONS (3)
  - Congenital megacolon [Unknown]
  - Abdominal compartment syndrome [Unknown]
  - Foetal exposure during pregnancy [Unknown]
